FAERS Safety Report 4885230-7 (Version None)
Quarter: 2005Q4

REPORT INFORMATION
  Report Type: 
  Country: None (occurrence: None)
  Receive Date: 20051216
  Receipt Date: 20051104
  Transmission Date: 20060501
  Serious: Yes (Other)
  Sender: FDA-Public Use
  Company Number: BDI-007710

PATIENT
  Age: 57 Year
  Sex: Male
  Weight: 163 kg

DRUGS (2)
  1. MULTIHANCE [Suspect]
     Indication: NUCLEAR MAGNETIC RESONANCE IMAGING
     Dosage: 20 ML ONCE IV
     Route: 042
     Dates: start: 20051103, end: 20051103
  2. ATIVAN [Concomitant]

REACTIONS (1)
  - HYPERSENSITIVITY [None]
